FAERS Safety Report 5622250-9 (Version None)
Quarter: 2008Q1

REPORT INFORMATION
  Report Type: 
  Country: None (occurrence: None)
  Receive Date: 20080114
  Receipt Date: 20071009
  Transmission Date: 20080703
  Serious: Yes (Hospitalization)
  Sender: FDA-Public Use
  Company Number: A03200705975

PATIENT

DRUGS (2)
  1. PLAVIX [Suspect]
     Indication: CORONARY REVASCULARISATION
     Dosage: ORAL
     Route: 048
  2. ASPIRIN [Suspect]
     Indication: CORONARY REVASCULARISATION

REACTIONS (1)
  - ATRIAL FIBRILLATION [None]
